FAERS Safety Report 8367408-3 (Version None)
Quarter: 2012Q2

REPORT INFORMATION
  Report Type: 
  Country: None (occurrence: None)
  Receive Date: 20120517
  Receipt Date: 20120508
  Transmission Date: 20120825
  Serious: Yes (Hospitalization, Other)
  Sender: FDA-Public Use
  Company Number: US-MERCK-1201USA02842

PATIENT
  Age: 45 Year
  Sex: Female

DRUGS (2)
  1. FOSAMAX [Suspect]
     Indication: OSTEOPOROSIS
     Route: 048
     Dates: start: 20010408, end: 20080601
  2. ALENDRONATE SODIUM [Suspect]
     Indication: OSTEOPOROSIS
     Route: 048
     Dates: start: 20080602, end: 20110518

REACTIONS (21)
  - BLOOD PRESSURE INCREASED [None]
  - HEADACHE [None]
  - HYPERGLYCAEMIA [None]
  - OSTEOPENIA [None]
  - ROTATOR CUFF SYNDROME [None]
  - TOOTH FRACTURE [None]
  - TENDON DISORDER [None]
  - EXOSTOSIS [None]
  - VITAMIN D DEFICIENCY [None]
  - BURSITIS [None]
  - HERPES ZOSTER [None]
  - RHINITIS ALLERGIC [None]
  - TOOTH DISORDER [None]
  - SINUSITIS [None]
  - CARPAL TUNNEL SYNDROME [None]
  - UTERINE LEIOMYOMA [None]
  - RHEUMATOID ARTHRITIS [None]
  - FEMUR FRACTURE [None]
  - LOW TURNOVER OSTEOPATHY [None]
  - DERMATITIS [None]
  - OSTEOARTHRITIS [None]
